FAERS Safety Report 22703475 (Version 4)
Quarter: 2024Q4

REPORT INFORMATION
  Report Type: Spontaneous
  Country: CA (occurrence: CA)
  Receive Date: 20230713
  Receipt Date: 20241114
  Transmission Date: 20250115
  Serious: Yes (Other)
  Sender: CELLTRION
  Company Number: CA-CELLTRION INC.-2023CA003678

PATIENT

DRUGS (3)
  1. YUFLYMA [Suspect]
     Active Substance: ADALIMUMAB-AATY
     Indication: Hidradenitis
     Dosage: 160 MG, 1/WEEK
     Route: 058
     Dates: start: 20230208
  2. YUFLYMA [Suspect]
     Active Substance: ADALIMUMAB-AATY
     Dosage: 40 MG, 1 EVERY 1 WEEKS
     Route: 058
     Dates: start: 20230228
  3. YUFLYMA [Suspect]
     Active Substance: ADALIMUMAB-AATY
     Dosage: 80 MG, 1/WEEK
     Route: 058

REACTIONS (6)
  - Chills [Unknown]
  - Influenza like illness [Unknown]
  - Hyperhidrosis [Unknown]
  - Pneumonia [Unknown]
  - Intentional dose omission [Unknown]
  - Off label use [Unknown]
